FAERS Safety Report 10662556 (Version 6)
Quarter: 2015Q3

REPORT INFORMATION
  Report Type: Report from Study
  Country: US (occurrence: US)
  Receive Date: 20141218
  Receipt Date: 20150819
  Transmission Date: 20151125
  Serious: Yes (Hospitalization, Other)
  Sender: FDA-Public Use
  Company Number: US-SANOFI-AVENTIS-2013SA094280

PATIENT
  Age: 47 Year
  Sex: Female

DRUGS (1)
  1. AUBAGIO [Suspect]
     Active Substance: TERIFLUNOMIDE
     Indication: MULTIPLE SCLEROSIS
     Dosage: TAKEN FROM: ABOUT TWO MONTHS
     Route: 048
     Dates: start: 20130722, end: 20150811

REACTIONS (18)
  - Rash [Unknown]
  - Dry skin [Unknown]
  - Rash [Unknown]
  - Diarrhoea [Unknown]
  - Cyst [Unknown]
  - Somnolence [Unknown]
  - Hair texture abnormal [Recovering/Resolving]
  - Stress [Unknown]
  - Alopecia [Unknown]
  - Bacterial infection [Not Recovered/Not Resolved]
  - Skin fissures [Unknown]
  - Urinary tract infection [Unknown]
  - Chest discomfort [Unknown]
  - Diarrhoea [Unknown]
  - Intervertebral disc protrusion [Unknown]
  - Dehydration [Unknown]
  - Alopecia [Recovering/Resolving]
  - Hair texture abnormal [Unknown]

NARRATIVE: CASE EVENT DATE: 2015
